FAERS Safety Report 12663560 (Version 5)
Quarter: 2017Q3

REPORT INFORMATION
  Report Type: Spontaneous
  Country: KR (occurrence: KR)
  Receive Date: 20160818
  Receipt Date: 20170801
  Transmission Date: 20171127
  Serious: Yes (Hospitalization)
  Sender: FDA-Public Use
  Company Number: KR-009507513-1608KOR008477

PATIENT
  Age: 56 Year
  Sex: Female
  Weight: 63.1 kg

DRUGS (32)
  1. AD MYCIN VIAL [Concomitant]
     Dosage: 77 MG, ONCE, CYCLE 2
     Route: 042
     Dates: start: 20160712, end: 20160712
  2. CARDIOXANE [Concomitant]
     Active Substance: DEXRAZOXANE HYDROCHLORIDE
     Dosage: 770 MG, ONCE, CYCLE 4
     Route: 042
     Dates: start: 20160823, end: 20160823
  3. ENDOXAN [Concomitant]
     Active Substance: CYCLOPHOSPHAMIDE
     Dosage: 770 MG, ONCE, CYCLE 2
     Route: 042
     Dates: start: 20160712, end: 20160712
  4. AD MYCIN VIAL [Concomitant]
     Dosage: 77 MG, ONCE, CYCLE 4
     Route: 042
     Dates: start: 20160823, end: 20160823
  5. CARDIOXANE [Concomitant]
     Active Substance: DEXRAZOXANE HYDROCHLORIDE
     Dosage: 770 MG, ONCE, CYCLE 3
     Route: 042
     Dates: start: 20160802, end: 20160802
  6. DEXAMETHASONE. [Concomitant]
     Active Substance: DEXAMETHASONE
     Dosage: 0.5 MG, QD
     Route: 048
     Dates: start: 20160803, end: 20160805
  7. ALOXI [Concomitant]
     Active Substance: PALONOSETRON HYDROCHLORIDE
     Indication: PROPHYLAXIS OF NAUSEA AND VOMITING
     Dosage: 5 ML, ONCE
     Route: 042
     Dates: start: 20160622, end: 20160622
  8. DEXAMETHASONE. [Concomitant]
     Active Substance: DEXAMETHASONE
     Dosage: 5 MG, ONCE
     Route: 042
     Dates: start: 20160712, end: 20160712
  9. ALOXI [Concomitant]
     Active Substance: PALONOSETRON HYDROCHLORIDE
     Dosage: 5 ML, ONCE
     Route: 042
     Dates: start: 20160802, end: 20160802
  10. EMEND (FOSAPREPITANT DIMEGLUMINE) [Suspect]
     Active Substance: FOSAPREPITANT DIMEGLUMINE
     Dosage: 150 MG, ONCE
     Route: 042
     Dates: start: 20160712, end: 20160712
  11. EMEND (FOSAPREPITANT DIMEGLUMINE) [Suspect]
     Active Substance: FOSAPREPITANT DIMEGLUMINE
     Dosage: 150 MG, ONCE
     Route: 042
     Dates: start: 20160802, end: 20160802
  12. AD MYCIN VIAL [Concomitant]
     Indication: BREAST CANCER
     Dosage: 96 MG, ONCE, CYCLE 1
     Route: 042
     Dates: start: 20160622, end: 20160622
  13. ENDOXAN [Concomitant]
     Active Substance: CYCLOPHOSPHAMIDE
     Indication: BREAST CANCER
     Dosage: 966 MG, ONCE, CYCLE 1
     Route: 042
     Dates: start: 20160622, end: 20160622
  14. ENDOXAN [Concomitant]
     Active Substance: CYCLOPHOSPHAMIDE
     Dosage: 770 MG, ONCE, CYCLE 3
     Route: 042
     Dates: start: 20160802, end: 20160802
  15. DEXAMETHASONE. [Concomitant]
     Active Substance: DEXAMETHASONE
     Dosage: 5 MG, ONCE
     Route: 042
     Dates: start: 20160802, end: 20160802
  16. ALOXI [Concomitant]
     Active Substance: PALONOSETRON HYDROCHLORIDE
     Dosage: 5 ML, ONCE
     Route: 042
     Dates: start: 20160823, end: 20160823
  17. VIREAD [Concomitant]
     Active Substance: TENOFOVIR DISOPROXIL FUMARATE
     Indication: ANTIVIRAL PROPHYLAXIS
     Dosage: 1 TABLET, QD
     Route: 048
     Dates: start: 20160621
  18. DIABEX [Concomitant]
     Active Substance: METFORMIN HYDROCHLORIDE
     Indication: DIABETES MELLITUS
     Dosage: 1 TABLET (1000 MG), QD
     Route: 048
     Dates: start: 2003
  19. EMEND (FOSAPREPITANT DIMEGLUMINE) [Suspect]
     Active Substance: FOSAPREPITANT DIMEGLUMINE
     Dosage: 150 MG, ONCE
     Route: 042
     Dates: start: 20160823, end: 20160823
  20. CARDIOXANE [Concomitant]
     Active Substance: DEXRAZOXANE HYDROCHLORIDE
     Indication: BREAST CANCER
     Dosage: 966 MG, ONCE, CYCLE 1
     Route: 042
     Dates: start: 20160622, end: 20160622
  21. DEXAMETHASONE. [Concomitant]
     Active Substance: DEXAMETHASONE
     Dosage: 5 MG, ONCE
     Route: 042
     Dates: start: 20160823, end: 20160823
  22. EMEND (FOSAPREPITANT DIMEGLUMINE) [Suspect]
     Active Substance: FOSAPREPITANT DIMEGLUMINE
     Indication: PROPHYLAXIS OF NAUSEA AND VOMITING
     Dosage: 150 MG, ONCE
     Route: 042
     Dates: start: 20160622, end: 20160622
  23. DEXAMETHASONE. [Concomitant]
     Active Substance: DEXAMETHASONE
     Dosage: 0.5 MG, QD
     Route: 048
     Dates: start: 20160713, end: 20160715
  24. LOZARSIN PLUS [Concomitant]
     Indication: HYPERTENSION
     Dosage: 1 TABLET (12.5/50 MG), QD
     Route: 048
     Dates: start: 2006
  25. AD MYCIN VIAL [Concomitant]
     Dosage: 77 MG, ONCE, CYCLE 3
     Route: 042
     Dates: start: 20160802, end: 20160802
  26. CARDIOXANE [Concomitant]
     Active Substance: DEXRAZOXANE HYDROCHLORIDE
     Dosage: 770 MG, ONCE, CYCLE 2
     Route: 042
     Dates: start: 20160712, end: 20160712
  27. ENDOXAN [Concomitant]
     Active Substance: CYCLOPHOSPHAMIDE
     Dosage: 770 MG, ONCE, CYCLE 4
     Route: 042
     Dates: start: 20160823, end: 20160823
  28. DEXAMETHASONE. [Concomitant]
     Active Substance: DEXAMETHASONE
     Indication: PROPHYLAXIS OF NAUSEA AND VOMITING
     Dosage: 0.5 MG, QD
     Route: 048
     Dates: start: 20160623, end: 20160625
  29. ALOXI [Concomitant]
     Active Substance: PALONOSETRON HYDROCHLORIDE
     Dosage: 5 ML, ONCE
     Route: 042
     Dates: start: 20160712, end: 20160712
  30. ZEMIGLO [Concomitant]
     Indication: DIABETES MELLITUS
     Dosage: 1 TABLET (50 MG), QD
     Route: 048
     Dates: start: 2003
  31. DEXAMETHASONE. [Concomitant]
     Active Substance: DEXAMETHASONE
     Indication: PROPHYLAXIS OF NAUSEA AND VOMITING
     Dosage: 5 MG, ONCE
     Route: 042
     Dates: start: 20160622, end: 20160622
  32. DEXAMETHASONE. [Concomitant]
     Active Substance: DEXAMETHASONE
     Dosage: 0.5 MG, QD
     Route: 048
     Dates: start: 20160824, end: 20160826

REACTIONS (1)
  - Pyrexia [Recovered/Resolved]

NARRATIVE: CASE EVENT DATE: 20160701
